FAERS Safety Report 9770343 (Version 1)
Quarter: 2013Q4

REPORT INFORMATION
  Report Type: Spontaneous
  Country: US (occurrence: US)
  Receive Date: 20131218
  Receipt Date: 20131218
  Transmission Date: 20140711
  Serious: Yes (Hospitalization)
  Sender: FDA-Public Use
  Company Number: US-NOVEN-13US008351

PATIENT
  Sex: Female

DRUGS (5)
  1. LITHOBID [Suspect]
     Indication: BIPOLAR I DISORDER
     Dosage: 300 MG, UNK
     Route: 048
     Dates: start: 1998
  2. LITHIUM CARBONATE [Suspect]
     Indication: BIPOLAR DISORDER
     Dosage: 300 MG, UNK
     Dates: end: 1998
  3. TOPROL [Concomitant]
     Indication: HYPERTENSION
     Dosage: 50 MG, UNK
     Route: 048
  4. CRESTOR [Concomitant]
     Indication: PRODUCT USED FOR UNKNOWN INDICATION
     Dosage: 10 MG, UNK
     Route: 048
  5. NEXIUM                             /01479302/ [Concomitant]
     Indication: PRODUCT USED FOR UNKNOWN INDICATION
     Route: 048

REACTIONS (6)
  - Renal cancer [Unknown]
  - Urticaria [Recovered/Resolved]
  - Feeling abnormal [Recovered/Resolved]
  - Hallucination [Recovered/Resolved]
  - Drug hypersensitivity [Recovered/Resolved]
  - Tremor [Recovered/Resolved]
